FAERS Safety Report 8686668 (Version 5)
Quarter: 2012Q4

REPORT INFORMATION
  Report Type: 
  Country: BR (occurrence: BR)
  Receive Date: 20120727
  Receipt Date: 20121019
  Transmission Date: 20130627
  Serious: Yes (Other)
  Sender: FDA-Public Use
  Company Number: BR-BIOGENIDEC-2012BI005807

PATIENT
  Age: 30 Year
  Sex: Female
  Weight: 64 kg

DRUGS (3)
  1. AVONEX [Suspect]
     Indication: MULTIPLE SCLEROSIS
     Route: 030
     Dates: start: 201001, end: 201110
  2. NATALE (POLYVITAMINS) [Concomitant]
     Indication: PREGNANCY
     Route: 048
     Dates: end: 201208
  3. NORIPURUM (FERRIC HYDROXIDE) [Concomitant]
     Indication: PREGNANCY
     Route: 048
     Dates: end: 201207

REACTIONS (1)
  - Caesarean section [Unknown]
